APPROVED DRUG PRODUCT: FENTANYL-25
Active Ingredient: FENTANYL
Strength: 25MCG/HR
Dosage Form/Route: FILM, EXTENDED RELEASE;TRANSDERMAL
Application: A077775 | Product #001
Applicant: NOVEN PHARMACEUTICALS INC
Approved: Oct 16, 2009 | RLD: No | RS: No | Type: DISCN